FAERS Safety Report 18882600 (Version 3)
Quarter: 2024Q4

REPORT INFORMATION
  Report Type: Spontaneous
  Country: US (occurrence: US)
  Receive Date: 20210212
  Receipt Date: 20241111
  Transmission Date: 20250114
  Serious: No
  Sender: SANOFI AVENTIS
  Company Number: US-SA-SAC20210205001803

PATIENT
  Sex: Female
  Weight: 135.17 kg

DRUGS (2)
  1. DUPIXENT [Suspect]
     Active Substance: DUPILUMAB
     Indication: Dermatitis atopic
     Dosage: 300 MG, QOW
     Route: 058
     Dates: start: 201904
  2. TRIAMCINOLONE [Concomitant]
     Active Substance: TRIAMCINOLONE
     Dosage: UNK

REACTIONS (8)
  - Swelling [Unknown]
  - Lacrimation increased [Unknown]
  - Urticaria [Unknown]
  - Product dose omission issue [Unknown]
  - Pruritus [Unknown]
  - Skin burning sensation [Unknown]
  - Rash [Unknown]
  - Dermatitis atopic [Not Recovered/Not Resolved]
